FAERS Safety Report 22138891 (Version 1)
Quarter: 2023Q1

REPORT INFORMATION
  Report Type: Report from Study
  Country: AU (occurrence: AU)
  Receive Date: 20230327
  Receipt Date: 20230327
  Transmission Date: 20230418
  Serious: Yes (Other)
  Sender: FDA-Public Use
  Company Number: AU-ABBVIE-4333664

PATIENT
  Age: 85 Year
  Sex: Male

DRUGS (2)
  1. CARBIDOPA\LEVODOPA [Suspect]
     Active Substance: CARBIDOPA\LEVODOPA
     Indication: Parkinson^s disease
     Dosage: DURATION TEXT: 16 HOURS?DUODOPA 100 ML GEL CASSETTE AND ALSO RECEIVED ABBVIE PEG 20 FR?THE MORNIN...
     Route: 050
     Dates: start: 20220403
  2. CARBIDOPA\LEVODOPA [Suspect]
     Active Substance: CARBIDOPA\LEVODOPA

REACTIONS (1)
  - Stomal hernia [Unknown]

NARRATIVE: CASE EVENT DATE: 20230306
